FAERS Safety Report 14439270 (Version 1)
Quarter: 2018Q1

REPORT INFORMATION
  Report Type: Spontaneous
  Country: FR (occurrence: FR)
  Receive Date: 20180125
  Receipt Date: 20180125
  Transmission Date: 20180509
  Serious: Yes (Hospitalization, Other)
  Sender: FDA-Public Use
  Company Number: PHHY2017FR199752

PATIENT
  Age: 75 Year
  Sex: Male

DRUGS (5)
  1. TEGRETOL [Suspect]
     Active Substance: CARBAMAZEPINE
     Indication: TRIGEMINAL NEURALGIA
     Dosage: UNK
     Route: 048
  2. LIPTRUZET [Interacting]
     Active Substance: ATORVASTATIN CALCIUM\EZETIMIBE
     Indication: PRODUCT USED FOR UNKNOWN INDICATION
     Dosage: STRENGTH 10/40
     Route: 048
  3. SIMVASTATIN. [Interacting]
     Active Substance: SIMVASTATIN
     Indication: BLOOD CHOLESTEROL INCREASED
     Route: 048
  4. EZETROL [Interacting]
     Active Substance: EZETIMIBE
     Indication: BLOOD CHOLESTEROL INCREASED
     Route: 048
  5. TEGRETOL [Interacting]
     Active Substance: CARBAMAZEPINE
     Dosage: 200 MG, TID
     Route: 048

REACTIONS (5)
  - Renal colic [Unknown]
  - Nephrolithiasis [Unknown]
  - Stent placement [Unknown]
  - Stent placement [Unknown]
  - Trigeminal neuralgia [Not Recovered/Not Resolved]

NARRATIVE: CASE EVENT DATE: 201705
